FAERS Safety Report 5606482-1 (Version None)
Quarter: 2008Q1

REPORT INFORMATION
  Report Type: 
  Country: None (occurrence: None)
  Receive Date: 20080125
  Receipt Date: 20080114
  Transmission Date: 20080703
  Serious: Yes (Other)
  Sender: FDA-Public Use
  Company Number: 2007EN000306

PATIENT
  Age: 67 Year
  Sex: Female

DRUGS (12)
  1. OPANA ER [Suspect]
     Indication: BACK PAIN
     Dosage: 5 MG, PER ORAL
     Route: 048
     Dates: start: 20070917, end: 20071011
  2. LORCET-HD [Concomitant]
  3. CELEBREX [Concomitant]
  4. LEXAPRO [Concomitant]
  5. ISORDIL [Concomitant]
  6. LIPITOR [Concomitant]
  7. ZETIA [Concomitant]
  8. POTASSIUM CHLORIDE [Concomitant]
  9. NEXIUM [Concomitant]
  10. SYNTHROID [Concomitant]
  11. CALCIUM GLUCONATE [Concomitant]
  12. VITAMIN D [Concomitant]

REACTIONS (3)
  - DEPRESSION [None]
  - IRRITABILITY [None]
  - MOOD ALTERED [None]
